FAERS Safety Report 12052855 (Version 1)
Quarter: 2016Q1

REPORT INFORMATION
  Report Type: Spontaneous
  Country: CA (occurrence: CA)
  Receive Date: 20160209
  Receipt Date: 20160209
  Transmission Date: 20160526
  Serious: Yes (Other)
  Sender: FDA-Public Use
  Company Number: CA-FERRINGPH-2015FE02139

PATIENT

DRUGS (4)
  1. PROGESTERONE. [Suspect]
     Active Substance: PROGESTERONE
     Indication: MENSTRUAL DISORDER
     Route: 067
  2. LETROZOLE. [Suspect]
     Active Substance: LETROZOLE
     Indication: ANOVULATORY CYCLE
     Dosage: 2.5 MG, UNK
     Route: 048
  3. LETROZOLE. [Suspect]
     Active Substance: LETROZOLE
     Dosage: 7.5 MG, UNK
     Route: 048
     Dates: start: 2012, end: 2012
  4. LETROZOLE. [Suspect]
     Active Substance: LETROZOLE
     Dosage: 5.0 MG, UNK
     Route: 048

REACTIONS (2)
  - Off label use [Unknown]
  - Multiple pregnancy [Unknown]
